FAERS Safety Report 8555144-X (Version None)
Quarter: 2012Q3

REPORT INFORMATION
  Report Type: 
  Country: None (occurrence: None)
  Receive Date: 20120731
  Receipt Date: 20120724
  Transmission Date: 20120928
  Serious: Yes (Hospitalization)
  Sender: FDA-Public Use
  Company Number: JP-BAYER-2012-067768

PATIENT
  Age: 81 Year
  Sex: Male

DRUGS (9)
  1. OMEPRAZOLE [Concomitant]
     Dosage: 20 MG, UNK
     Route: 048
     Dates: start: 20111001, end: 20120703
  2. LEUPROLIDE ACETATE [Concomitant]
     Dosage: UNK
     Route: 058
     Dates: start: 20031001
  3. ASPIRIN [Suspect]
     Indication: CEREBELLAR INFARCTION
     Dosage: 100 MG, QD
     Route: 048
     Dates: start: 20031001, end: 20120703
  4. ATORVASTATIN [Concomitant]
     Dosage: 10 MG, UNK
     Route: 048
     Dates: start: 20031001, end: 20120703
  5. ALENDRONATE SODIUM [Concomitant]
     Dosage: 35 MG, OW
     Route: 048
     Dates: end: 20120703
  6. ENALAPRIL MALEATE [Concomitant]
     Dosage: 5 MG, UNK
     Route: 048
     Dates: start: 20031001, end: 20120703
  7. LEVOFLOXACIN [Concomitant]
     Dosage: 500 MG, UNK
     Route: 048
     Dates: end: 20120703
  8. NIFELAT L [Concomitant]
     Dosage: 20 MG, UNK
     Route: 048
     Dates: start: 20031001, end: 20120703
  9. LEBELBON [Concomitant]
     Dosage: 12 MG, UNK
     Route: 048
     Dates: end: 20120703

REACTIONS (2)
  - ERYTHEMA MULTIFORME [None]
  - DRUG ERUPTION [None]
